FAERS Safety Report 23035354 (Version 1)
Quarter: 2023Q4

REPORT INFORMATION
  Report Type: Spontaneous
  Country: US (occurrence: US)
  Receive Date: 20231005
  Receipt Date: 20231005
  Transmission Date: 20240110
  Serious: Yes (Other)
  Sender: FDA-Public Use
  Company Number: US-BIOGEN-2023BI01229151

PATIENT

DRUGS (1)
  1. TYSABRI [Suspect]
     Active Substance: NATALIZUMAB
     Indication: Product used for unknown indication
     Route: 050

REACTIONS (5)
  - Acute pulmonary oedema [Unknown]
  - Anaphylactic reaction [Unknown]
  - Multiple sclerosis relapse [Unknown]
  - Urticaria [Recovered/Resolved]
  - Drug specific antibody present [Unknown]
